FAERS Safety Report 8571146-1 (Version None)
Quarter: 2012Q3

REPORT INFORMATION
  Report Type: 
  Country: None (occurrence: None)
  Receive Date: 20120806
  Receipt Date: 20120731
  Transmission Date: 20120928
  Serious: No
  Sender: FDA-Public Use
  Company Number: US-PFIZER INC-2012186450

PATIENT
  Age: 40 Year
  Sex: Male
  Weight: 59.864 kg

DRUGS (14)
  1. SEROQUEL [Concomitant]
     Dosage: 600 MG, 4X/DA, 100MG THREE TIMES IN THE DAY AND 300MG AT NIGHT Y
  2. DOCUSATE [Concomitant]
     Dosage: 100 MG, 2X/DAY
  3. PROSOM [Concomitant]
     Dosage: 2 MG, 1X/DAY
  4. ADVAIR DISKUS 100/50 [Concomitant]
     Dosage: 250/50 MCG
  5. VENTOLIN HFA [Concomitant]
     Indication: CHRONIC OBSTRUCTIVE PULMONARY DISEASE
     Dosage: UNK, AS NEEDED
  6. PREVACID [Concomitant]
     Dosage: 2 MG, 4X/DAY
  7. FOLIC ACID [Concomitant]
     Dosage: 1 MG, 2X/DAY
  8. ATIVAN [Concomitant]
     Indication: ANXIETY
     Dosage: 1 MG, 3X/DAY
  9. DILANTIN [Suspect]
     Indication: GRAND MAL CONVULSION
     Dosage: 100 MG, 3X/DAY
     Dates: start: 20030101
  10. CALCIUM WITH VITAMIN D [Concomitant]
     Dosage: 600 MG, 1X/DAY
  11. CLONIDINE [Concomitant]
     Dosage: 0.1 MG, 3X/DAY
  12. RESTORIL [Concomitant]
     Dosage: 30 MG, DAILY
  13. VITAMIN B6 [Concomitant]
     Dosage: 100 MG, 2X/DAY
  14. BENTYL [Concomitant]
     Indication: IRRITABLE BOWEL SYNDROME
     Dosage: 20 MG, AS NEEDED

REACTIONS (1)
  - TOOTHACHE [None]
